FAERS Safety Report 17745244 (Version 1)
Quarter: 2020Q2

REPORT INFORMATION
  Report Type: Spontaneous
  Country: US (occurrence: US)
  Receive Date: 20200505
  Receipt Date: 20200505
  Transmission Date: 20200714
  Serious: No
  Sender: FDA-Public Use
  Company Number: US-VERTEX PHARMACEUTICALS-2020-009778

PATIENT
  Age: 34 Year
  Sex: Female
  Weight: 107 kg

DRUGS (1)
  1. TRIKAFTA [Suspect]
     Active Substance: ELEXACAFTOR\IVACAFTOR\TEZACAFTOR
     Indication: CYSTIC FIBROSIS
     Dosage: 2 TABS (100MG ELEXACAFTOR, 50 MG TEZACAFTOR, 75MG IVACAFTOR)AM; 1 TABLET (150MG IVACAFTOR) PM
     Route: 048
     Dates: start: 20200418

REACTIONS (2)
  - Insomnia [Unknown]
  - Rhinorrhoea [Unknown]

NARRATIVE: CASE EVENT DATE: 202004
